FAERS Safety Report 14424442 (Version 1)
Quarter: 2018Q1

REPORT INFORMATION
  Report Type: Spontaneous
  Country: US (occurrence: US)
  Receive Date: 20180123
  Receipt Date: 20180123
  Transmission Date: 20180509
  Serious: Yes (Other)
  Sender: FDA-Public Use
  Company Number: US-ROCHE-2057590

PATIENT
  Age: 55 Year
  Sex: Female

DRUGS (11)
  1. TUMS [Concomitant]
     Active Substance: CALCIUM CARBONATE
  2. VITAMIN D3 [Concomitant]
     Active Substance: CHOLECALCIFEROL
  3. PROTONIX [Concomitant]
     Active Substance: PANTOPRAZOLE SODIUM
  4. SEROQUEL [Concomitant]
     Active Substance: QUETIAPINE FUMARATE
  5. ESBRIET [Suspect]
     Active Substance: PIRFENIDONE
     Indication: IDIOPATHIC PULMONARY FIBROSIS
     Route: 048
     Dates: start: 20170511
  6. ADVIL [Concomitant]
     Active Substance: IBUPROFEN
  7. QUETIAPINE. [Concomitant]
     Active Substance: QUETIAPINE
  8. CLONAZEPAM. [Suspect]
     Active Substance: CLONAZEPAM
     Indication: PRODUCT USED FOR UNKNOWN INDICATION
     Route: 065
  9. PEPCID (UNITED STATES) [Concomitant]
  10. FLONASE [Concomitant]
     Active Substance: FLUTICASONE PROPIONATE
  11. PROZAC [Concomitant]
     Active Substance: FLUOXETINE HYDROCHLORIDE

REACTIONS (3)
  - Off label use [Unknown]
  - Intentional product use issue [Unknown]
  - Depression [Not Recovered/Not Resolved]

NARRATIVE: CASE EVENT DATE: 20171201
